FAERS Safety Report 8115187-7 (Version None)
Quarter: 2012Q1

REPORT INFORMATION
  Report Type: 
  Country: None (occurrence: None)
  Receive Date: 20120201
  Receipt Date: 20120117
  Transmission Date: 20120608
  Serious: Yes (Other)
  Sender: FDA-Public Use
  Company Number: FK201200200

PATIENT
  Age: 48 Year
  Sex: Male

DRUGS (1)
  1. FLUOROURACIL [Suspect]
     Indication: GASTRIC CANCER

REACTIONS (4)
  - VENOOCCLUSIVE LIVER DISEASE [None]
  - JAUNDICE [None]
  - ABDOMINAL PAIN UPPER [None]
  - ASCITES [None]
